FAERS Safety Report 12391294 (Version 1)
Quarter: 2016Q2

REPORT INFORMATION
  Report Type: Spontaneous
  Country: AU (occurrence: AU)
  Receive Date: 20160520
  Receipt Date: 20160520
  Transmission Date: 20160815
  Serious: Yes (Other)
  Sender: FDA-Public Use
  Company Number: AU-BRISTOL-MYERS SQUIBB COMPANY-BMS-2016-037743

PATIENT
  Sex: Female
  Weight: 79.6 kg

DRUGS (2)
  1. SOFOSBUVIR [Suspect]
     Active Substance: SOFOSBUVIR
     Indication: HEPATITIS C
     Dosage: 400 MG, QD
     Route: 048
  2. DACLATASVIR DIHYDROCHLORIDE [Suspect]
     Active Substance: DACLATASVIR DIHYDROCHLORIDE
     Indication: HEPATITIS C
     Dosage: 60 MG, QD
     Route: 048

REACTIONS (8)
  - Depression [Unknown]
  - Disturbance in attention [Unknown]
  - Thirst [Unknown]
  - Sinusitis [Unknown]
  - Dry mouth [Unknown]
  - Mental impairment [Unknown]
  - Vertigo [Unknown]
  - Anxiety [Unknown]
